FAERS Safety Report 19905128 (Version 1)
Quarter: 2021Q3

REPORT INFORMATION
  Report Type: Spontaneous
  Country: US (occurrence: US)
  Receive Date: 20210930
  Receipt Date: 20210930
  Transmission Date: 20211014
  Serious: Yes (Other)
  Sender: FDA-Public Use
  Company Number: None

PATIENT
  Sex: Female

DRUGS (6)
  1. MODAFINIL. [Concomitant]
     Active Substance: MODAFINIL
  2. TYLENOL [Concomitant]
     Active Substance: ACETAMINOPHEN
  3. ALEVE [Concomitant]
     Active Substance: NAPROXEN SODIUM
  4. GILENYA [Suspect]
     Active Substance: FINGOLIMOD HYDROCHLORIDE
     Indication: MULTIPLE SCLEROSIS
     Route: 048
     Dates: start: 20170614
  5. AUBAGIO [Concomitant]
     Active Substance: TERIFLUNOMIDE
  6. PEPCID [Concomitant]
     Active Substance: FAMOTIDINE

REACTIONS (1)
  - Heart rate irregular [None]
